FAERS Safety Report 11124355 (Version 1)
Quarter: 2015Q2

REPORT INFORMATION
  Report Type: Spontaneous
  Country: US (occurrence: None)
  Receive Date: 20150518
  Receipt Date: 20150518
  Transmission Date: 20150821
  Serious: Yes (Hospitalization)
  Sender: FDA-Public Use
  Company Number: FK201502284

PATIENT
  Age: 13 Year
  Sex: Male

DRUGS (1)
  1. CYTARABINE (MANUFACTURER UNKNOWN) (CYTARABINE) (CYTARABINE) [Suspect]
     Active Substance: CYTARABINE
     Indication: T-CELL TYPE ACUTE LEUKAEMIA
     Route: 037

REACTIONS (6)
  - Respiratory failure [None]
  - Renal failure [None]
  - Unresponsive to stimuli [None]
  - Urate nephropathy [None]
  - Tumour lysis syndrome [None]
  - Haemodialysis [None]
